FAERS Safety Report 4756545-8 (Version None)
Quarter: 2005Q3

REPORT INFORMATION
  Report Type: 
  Country: None (occurrence: None)
  Receive Date: 20050830
  Receipt Date: 20050729
  Transmission Date: 20060218
  Serious: No
  Sender: FDA-Public Use
  Company Number: US-GLAXOSMITHKLINE-A0568266A

PATIENT
  Age: 52 Year
  Sex: Female

DRUGS (3)
  1. WELLBUTRIN XL [Suspect]
     Indication: MENOPAUSAL SYMPTOMS
     Dosage: 150MG PER DAY
     Route: 048
  2. ZOCOR [Concomitant]
  3. GLUCOSAMINE [Concomitant]

REACTIONS (1)
  - BLOOD PRESSURE INCREASED [None]
